FAERS Safety Report 22049591 (Version 2)
Quarter: 2023Q2

REPORT INFORMATION
  Report Type: Spontaneous
  Country: FR (occurrence: FR)
  Receive Date: 20230301
  Receipt Date: 20230405
  Transmission Date: 20230721
  Serious: Yes (Other)
  Sender: FDA-Public Use
  Company Number: FR-002147023-NVSC2023FR045976

PATIENT
  Age: 62 Year
  Sex: Female
  Weight: 59 kg

DRUGS (12)
  1. AFINITOR [Suspect]
     Active Substance: EVEROLIMUS
     Indication: Neoplasm
     Dosage: 2.5 MG, QD (DOSE LEVEL: -2 AND -1)
     Route: 065
  2. AFINITOR [Suspect]
     Active Substance: EVEROLIMUS
     Dosage: 5 MG, QD (DOSE LEVEL: 1 AND 2)
     Route: 065
  3. AFINITOR [Suspect]
     Active Substance: EVEROLIMUS
     Dosage: 7.5 MG, QD (DOSE LEVEL: 3)
     Route: 065
  4. AFINITOR [Suspect]
     Active Substance: EVEROLIMUS
     Dosage: 10 MG, QD (DOSE LEVEL: 4)
     Route: 065
     Dates: start: 20190402, end: 20190408
  5. NEXAVAR [Suspect]
     Active Substance: SORAFENIB
     Indication: Neoplasm
     Dosage: 200 MG, QD (DOSE LEVEL: -2)
     Route: 065
  6. NEXAVAR [Suspect]
     Active Substance: SORAFENIB
     Dosage: 200 MG, BID (DOSE LEVEL: -1 AND 1)
     Route: 065
  7. NEXAVAR [Suspect]
     Active Substance: SORAFENIB
     Dosage: 400 MG, BID (DOSE LEVEL: 2,3,4) ON ODD WEEKS
     Route: 065
     Dates: start: 20190326, end: 20190401
  8. TRAMADOL [Concomitant]
     Active Substance: TRAMADOL
     Indication: Product used for unknown indication
     Dosage: 50 MG, PRN
     Route: 065
  9. DESLORATADINE [Concomitant]
     Active Substance: DESLORATADINE
     Indication: Product used for unknown indication
     Dosage: 5 MG, QD
     Route: 065
  10. LOPERAMIDE [Concomitant]
     Active Substance: LOPERAMIDE
     Indication: Product used for unknown indication
     Dosage: 2 MG, PRN
     Route: 065
  11. PREDNISONE [Concomitant]
     Active Substance: PREDNISONE
     Indication: Product used for unknown indication
     Dosage: FOR MOUTHWASH
     Route: 065
  12. PHLOROGLUCINOL [Concomitant]
     Active Substance: PHLOROGLUCINOL
     Indication: Product used for unknown indication
     Dosage: 80 MG, PRN
     Route: 065

REACTIONS (1)
  - Lipase increased [Unknown]

NARRATIVE: CASE EVENT DATE: 20190401
